FAERS Safety Report 9215016 (Version 1)
Quarter: 2013Q2

REPORT INFORMATION
  Report Type: Spontaneous
  Country: IT (occurrence: IT)
  Receive Date: 20130405
  Receipt Date: 20130405
  Transmission Date: 20140414
  Serious: Yes (Death)
  Sender: FDA-Public Use
  Company Number: PHHY2013IT033087

PATIENT
  Age: 45 Year
  Sex: Female

DRUGS (2)
  1. PREDNISONE [Suspect]
     Indication: INTERSTITIAL LUNG DISEASE
     Dosage: 12.5/2.5 MG/KG/DAY
  2. CICLOSPORIN [Suspect]
     Indication: INTERSTITIAL LUNG DISEASE
     Dosage: 03 MG/KG/DAY

REACTIONS (4)
  - Respiratory failure [Fatal]
  - Interstitial lung disease [Fatal]
  - Dyspnoea [Unknown]
  - Drug ineffective [Unknown]
